FAERS Safety Report 6482135-5 (Version None)
Quarter: 2009Q4

REPORT INFORMATION
  Report Type: 
  Country: None (occurrence: None)
  Receive Date: 20091208
  Receipt Date: 20090409
  Transmission Date: 20100525
  Serious: No
  Sender: FDA-Public Use
  Company Number: US-AMGEN-KDL342408

PATIENT
  Sex: Male

DRUGS (1)
  1. ENBREL [Suspect]
     Indication: PSORIASIS

REACTIONS (4)
  - MALAISE [None]
  - VERTIGO [None]
  - VISION BLURRED [None]
  - VISUAL IMPAIRMENT [None]
